FAERS Safety Report 4727522-8 (Version None)
Quarter: 2005Q3

REPORT INFORMATION
  Report Type: 
  Country: None (occurrence: None)
  Receive Date: 20050727
  Receipt Date: 20050727
  Transmission Date: 20060218
  Serious: Yes (Hospitalization)
  Sender: FDA-Public Use
  Company Number: None

PATIENT
  Age: 61 Year
  Sex: Female
  Weight: 41.7309 kg

DRUGS (4)
  1. CETUXIMAB         BMS [Suspect]
     Indication: OESOPHAGEAL CARCINOMA
     Dosage: SEE  EVENT     Q WK X6    INTRAVENOU
     Route: 042
     Dates: start: 20050620, end: 20050712
  2. TAXOL [Suspect]
     Indication: OESOPHAGEAL CARCINOMA
     Dosage: SEE EVENT    Q WK X6    INTRAVENOU
     Route: 042
     Dates: start: 20050620, end: 20050712
  3. CARBOPLATIN [Suspect]
     Indication: OESOPHAGEAL CARCINOMA
     Dosage: SEE EVENT    Q WK X6    INTRAVENOU
     Route: 042
     Dates: start: 20050620, end: 20050712
  4. RADIATION [Suspect]
     Indication: OESOPHAGEAL CARCINOMA
     Dosage: 1.8 GY     Q DAY
     Dates: start: 20050620, end: 20050712

REACTIONS (2)
  - DEHYDRATION [None]
  - OESOPHAGITIS [None]
